FAERS Safety Report 5149272-9 (Version None)
Quarter: 2006Q4

REPORT INFORMATION
  Report Type: 
  Country: None (occurrence: None)
  Receive Date: 20061113
  Receipt Date: 20061002
  Transmission Date: 20070319
  Serious: Yes (Other)
  Sender: FDA-Public Use
  Company Number: GB-GLAXOSMITHKLINE-B0440480A

PATIENT
  Age: 14 Year
  Sex: Male

DRUGS (2)
  1. SERETIDE [Suspect]
     Indication: ASTHMA
     Dosage: 40PUFF UNKNOWN
     Route: 055
  2. VENTOLIN [Suspect]
     Indication: ASTHMA
     Route: 055

REACTIONS (3)
  - EUPHORIC MOOD [None]
  - INTENTIONAL OVERDOSE [None]
  - PSYCHOMOTOR HYPERACTIVITY [None]
